FAERS Safety Report 12865935 (Version 1)
Quarter: 2016Q4

REPORT INFORMATION
  Report Type: Spontaneous
  Country: US (occurrence: US)
  Receive Date: 20161020
  Receipt Date: 20161020
  Transmission Date: 20170207
  Serious: No
  Sender: FDA-Public Use
  Company Number: US-APOTEX-2016AP008407

PATIENT
  Age: 26 Year
  Sex: Female

DRUGS (2)
  1. MIDAZOLAM HYDROCHLORIDE INJECTION [Suspect]
     Active Substance: MIDAZOLAM HYDROCHLORIDE
     Indication: MUSCLE RIGIDITY
     Dosage: TITRATED TO 6MG/H OVER A PERIOD OF 6H
     Route: 065
  2. PHENELZINE [Concomitant]
     Active Substance: PHENELZINE
     Indication: DEPRESSION
     Dosage: 15 MG, DAILY
     Route: 065

REACTIONS (1)
  - Hypotension [Recovering/Resolving]
